FAERS Safety Report 4600127-5 (Version None)
Quarter: 2005Q1

REPORT INFORMATION
  Report Type: 
  Country: None (occurrence: None)
  Receive Date: 20050303
  Receipt Date: 20050218
  Transmission Date: 20050727
  Serious: Yes (Hospitalization)
  Sender: FDA-Public Use
  Company Number: 2005PK00297

PATIENT
  Age: 74 Year
  Sex: Female

DRUGS (8)
  1. SEROQUEL [Suspect]
     Dosage: 150 MG DAILY PO
     Route: 048
     Dates: start: 20020912, end: 20020930
  2. SEROQUEL [Suspect]
     Dosage: 75 MG DAILY PO
     Route: 048
     Dates: start: 20021001
  3. GLUCOBAY [Concomitant]
  4. TAVOR [Concomitant]
  5. DRIDASE [Concomitant]
  6. FUROSEMIDE [Concomitant]
  7. CLOPIDOGREL BISULFATE [Concomitant]
  8. SORTIS [Concomitant]

REACTIONS (4)
  - ELECTROCARDIOGRAM QT CORRECTED INTERVAL PROLONGED [None]
  - ELECTROCARDIOGRAM QT PROLONGED [None]
  - HEART RATE INCREASED [None]
  - VENTRICULAR EXTRASYSTOLES [None]
